FAERS Safety Report 9924792 (Version 1)
Quarter: 2014Q1

REPORT INFORMATION
  Report Type: Spontaneous
  Country: DE (occurrence: None)
  Receive Date: 20140221
  Receipt Date: 20140221
  Transmission Date: 20141002
  Serious: Yes (Hospitalization)
  Sender: FDA-Public Use
  Company Number: 14MRZ-00083

PATIENT
  Age: 30 Year
  Sex: Female

DRUGS (3)
  1. AETHOXYSKLEROL [Suspect]
     Indication: VARICOSE VEIN
     Dosage: 3 INJECTIONS; AEXTOXISCLEROL TAMPONNE 0.25% (LAUROMACROGOL 400), INTRAVENOUS
     Route: 042
  2. LEVOTHYROX (LEVOTHYROXINE SODIUM) LEVOTHYROXINE SODIUM) [Concomitant]
  3. MINIDRIL (EUGYNON/00022701/) (ETHINYLESTRADIOL, LEVONORGESTREL) [Concomitant]

REACTIONS (1)
  - Posterior reversible encephalopathy syndrome [None]
